FAERS Safety Report 12566663 (Version 3)
Quarter: 2016Q3

REPORT INFORMATION
  Report Type: Spontaneous
  Country: US (occurrence: US)
  Receive Date: 20160718
  Receipt Date: 20160819
  Transmission Date: 20161109
  Serious: Yes (Life-Threatening, Hospitalization)
  Sender: FDA-Public Use
  Company Number: US-JNJFOC-20160709452

PATIENT
  Age: 42 Year
  Sex: Female
  Weight: 110.68 kg

DRUGS (8)
  1. ATORVASTATIN [Concomitant]
     Active Substance: ATORVASTATIN
     Dosage: EVERY EVENING
     Route: 048
  2. XARELTO [Suspect]
     Active Substance: RIVAROXABAN
     Indication: GENE MUTATION
     Route: 048
     Dates: start: 20130321
  3. SIMVASTATIN. [Concomitant]
     Active Substance: SIMVASTATIN
     Dosage: BEDTIME
     Route: 048
  4. ASPIRIN. [Concomitant]
     Active Substance: ASPIRIN
     Route: 048
     Dates: start: 2006
  5. XARELTO [Suspect]
     Active Substance: RIVAROXABAN
     Indication: CONGENITAL COAGULOPATHY
     Route: 048
     Dates: start: 20130321
  6. XARELTO [Suspect]
     Active Substance: RIVAROXABAN
     Indication: ATRIAL SEPTAL DEFECT
     Route: 048
     Dates: start: 20130321
  7. XARELTO [Suspect]
     Active Substance: RIVAROXABAN
     Indication: CEREBROVASCULAR ACCIDENT
     Route: 048
     Dates: start: 20130321
  8. PRILOSEC [Concomitant]
     Active Substance: OMEPRAZOLE MAGNESIUM
     Route: 048
     Dates: start: 201510

REACTIONS (4)
  - Product use issue [Unknown]
  - Off label use [Unknown]
  - Treatment failure [Unknown]
  - Cerebrovascular accident [Recovered/Resolved]

NARRATIVE: CASE EVENT DATE: 20151007
